FAERS Safety Report 7492789-2 (Version None)
Quarter: 2011Q2

REPORT INFORMATION
  Report Type: 
  Country: None (occurrence: None)
  Receive Date: 20110519
  Receipt Date: 20110511
  Transmission Date: 20111010
  Serious: No
  Sender: FDA-Public Use
  Company Number: US-BAYER-2011-041047

PATIENT
  Sex: Male

DRUGS (2)
  1. AVELOX [Suspect]
     Dosage: 400 MG, UNK
     Dates: start: 20101101
  2. AVELOX [Suspect]
     Dosage: 400 MG, UNK

REACTIONS (1)
  - TENDON DISORDER [None]
